FAERS Safety Report 7959093-7 (Version None)
Quarter: 2011Q4

REPORT INFORMATION
  Report Type: 
  Country: None (occurrence: None)
  Receive Date: 20111206
  Receipt Date: 20111206
  Transmission Date: 20120403
  Serious: Yes (Other)
  Sender: FDA-Public Use
  Company Number: None

PATIENT
  Age: 22 Year
  Sex: Female
  Weight: 48.987 kg

DRUGS (1)
  1. CIPROFLOXACIN [Suspect]
     Indication: URINARY TRACT INFECTION
     Dosage: 500MG
     Route: 048
     Dates: start: 20110815, end: 20110817

REACTIONS (8)
  - TENDONITIS [None]
  - FATIGUE [None]
  - MUSCLE ATROPHY [None]
  - ARTHRALGIA [None]
  - NEURALGIA [None]
  - PAIN IN EXTREMITY [None]
  - ANXIETY [None]
  - PALPITATIONS [None]
